FAERS Safety Report 14383241 (Version 5)
Quarter: 2018Q1

REPORT INFORMATION
  Report Type: Report from Study
  Country: None (occurrence: US)
  Receive Date: 20180115
  Receipt Date: 20180206
  Transmission Date: 20180509
  Serious: Yes (Other)
  Sender: FDA-Public Use
  Company Number: US-ABBVIE-18K-163-2221312-00

PATIENT
  Age: 60 Year
  Sex: Female
  Weight: 42.22 kg

DRUGS (4)
  1. DOMPERIDONE [Suspect]
     Active Substance: DOMPERIDONE
     Route: 065
  2. HUMIRA [Suspect]
     Active Substance: ADALIMUMAB
     Indication: CROHN^S DISEASE
     Route: 058
     Dates: start: 20180111, end: 20180111
  3. HUMIRA [Suspect]
     Active Substance: ADALIMUMAB
     Route: 058
     Dates: start: 20180125, end: 20180125
  4. DOMPERIDONE [Suspect]
     Active Substance: DOMPERIDONE
     Indication: CROHN^S DISEASE
     Route: 065
     Dates: start: 201712

REACTIONS (9)
  - Suicidal ideation [Recovered/Resolved]
  - Fall [Recovered/Resolved]
  - Dysarthria [Recovered/Resolved]
  - Device leakage [Unknown]
  - Crying [Recovered/Resolved]
  - Disorientation [Recovered/Resolved]
  - Depression [Recovered/Resolved]
  - Dizziness [Not Recovered/Not Resolved]
  - Loss of consciousness [Unknown]

NARRATIVE: CASE EVENT DATE: 201801
